FAERS Safety Report 8784789 (Version 1)
Quarter: 2012Q4

REPORT INFORMATION
  Report Type: Spontaneous
  Country: DE (occurrence: None)
  Receive Date: 20120831
  Receipt Date: 20120831
  Transmission Date: 20130627
  Serious: Yes (Hospitalization)
  Sender: FDA-Public Use
  Company Number: ACP_31549_2012

PATIENT
  Age: 48 Year
  Sex: Male

DRUGS (7)
  1. FAMPRIDINE [Suspect]
     Indication: MULTIPLE SCLEROSIS
     Route: 048
     Dates: start: 20120626
  2. BACLOFEN (BACLOFEN) [Concomitant]
  3. CITALOPRAM (CITALOPRAM HYDROCHLORIDE) [Concomitant]
  4. FOLIC ACID (FOLIC ACID) [Concomitant]
  5. PRAMIPEXOLE (PRAMIPEXOLE) [Concomitant]
  6. SIMVASTATIN (SIMVASTATIN) [Concomitant]
  7. SIMPAL (DEXKETOPROFEN) [Concomitant]

REACTIONS (1)
  - Spinal laminectomy [None]
